FAERS Safety Report 15864669 (Version 1)
Quarter: 2019Q1

REPORT INFORMATION
  Report Type: Spontaneous
  Country: US (occurrence: US)
  Receive Date: 20190124
  Receipt Date: 20190124
  Transmission Date: 20190417
  Serious: No
  Sender: FDA-Public Use
  Company Number: US-ALLERGAN-1822396US

PATIENT
  Sex: Male

DRUGS (1)
  1. PREDNISOLONE ACETATE, 1.0% [Suspect]
     Active Substance: PREDNISOLONE ACETATE
     Indication: RETINAL OEDEMA
     Dosage: UNK UNK, QD
     Route: 047

REACTIONS (4)
  - Inappropriate schedule of product administration [Unknown]
  - Ocular discomfort [Unknown]
  - Eye pain [Unknown]
  - Dry eye [Unknown]
